FAERS Safety Report 9302123 (Version 1)
Quarter: 2013Q2

REPORT INFORMATION
  Report Type: Spontaneous
  Country: IT (occurrence: IT)
  Receive Date: 20130521
  Receipt Date: 20130521
  Transmission Date: 20140414
  Serious: Yes (Hospitalization)
  Sender: FDA-Public Use
  Company Number: IT-009507513-1305ITA011009

PATIENT
  Age: 7 Year
  Sex: Female
  Weight: 30 kg

DRUGS (3)
  1. SINGULAIR [Suspect]
     Indication: ASTHMA
     Dosage: 4 MG, QD
     Route: 048
     Dates: start: 20121001, end: 20121130
  2. BRONCHO MUNAL [Interacting]
     Indication: RESPIRATORY TRACT INFECTION
     Dosage: UNK, CYCLICAL
     Route: 048
     Dates: start: 20121001, end: 20121110
  3. FLIXOTIDE [Interacting]
     Indication: ASTHMA
     Dosage: 125 MICROGRAM, QD
     Route: 055
     Dates: start: 20121001, end: 20121130

REACTIONS (5)
  - Chest pain [Recovered/Resolved]
  - Drug interaction [Recovered/Resolved]
  - Psychomotor hyperactivity [Recovered/Resolved]
  - Middle insomnia [Recovered/Resolved]
  - Apraxia [Recovered/Resolved]
